FAERS Safety Report 6222458-8 (Version None)
Quarter: 2009Q2

REPORT INFORMATION
  Report Type: 
  Country: None (occurrence: None)
  Receive Date: 20090609
  Receipt Date: 20090609
  Transmission Date: 20091009
  Serious: Yes (Other)
  Sender: FDA-Public Use
  Company Number: None

PATIENT
  Age: 45 Year
  Sex: Female
  Weight: 72.5755 kg

DRUGS (1)
  1. LOESTRIN 24 FE [Suspect]
     Indication: DYSMENORRHOEA
     Dosage: 1 MG/20MCG  1 D PO
     Route: 048
     Dates: start: 20090306, end: 20090313

REACTIONS (13)
  - AMENORRHOEA [None]
  - ANGER [None]
  - ANXIETY [None]
  - CONVERSION DISORDER [None]
  - CRYING [None]
  - DEPRESSION [None]
  - EMOTIONAL DISTRESS [None]
  - FATIGUE [None]
  - FEELING OF DESPAIR [None]
  - INSOMNIA [None]
  - MOOD SWINGS [None]
  - SUICIDAL IDEATION [None]
  - THINKING ABNORMAL [None]
